FAERS Safety Report 5679951-6 (Version None)
Quarter: 2008Q1

REPORT INFORMATION
  Report Type: 
  Country: None (occurrence: None)
  Receive Date: 20080326
  Receipt Date: 20080313
  Transmission Date: 20080703
  Serious: Yes (Other)
  Sender: FDA-Public Use
  Company Number: ES-RANBAXY-2008RR-13813

PATIENT

DRUGS (4)
  1. MIDAZOLAM SOLUTIE INJECTABILA 5MG/ML [Suspect]
  2. MIDAZOLAM HCL [Concomitant]
     Indication: SKIN TEST
  3. FLUNITRAZEPAM [Concomitant]
     Indication: SKIN TEST POSITIVE
     Route: 023
  4. DIAZEPAM [Concomitant]
     Dosage: 10 MG, UNK
     Route: 048

REACTIONS (1)
  - ANAPHYLACTIC REACTION [None]
